APPROVED DRUG PRODUCT: FEMHRT
Active Ingredient: ETHINYL ESTRADIOL; NORETHINDRONE ACETATE
Strength: 0.0025MG;0.5MG
Dosage Form/Route: TABLET;ORAL
Application: N021065 | Product #001
Applicant: ALLERGAN PHARMACEUTICALS INTERNATIONAL LTD
Approved: Jan 14, 2005 | RLD: Yes | RS: No | Type: DISCN